FAERS Safety Report 6399556-1 (Version None)
Quarter: 2009Q4

REPORT INFORMATION
  Report Type: 
  Country: None (occurrence: None)
  Receive Date: 20091014
  Receipt Date: 20091006
  Transmission Date: 20100525
  Serious: Yes (Other)
  Sender: FDA-Public Use
  Company Number: NL-TEVA-211461ISR

PATIENT
  Sex: Male
  Weight: 100 kg

DRUGS (1)
  1. VERAPAMIL [Suspect]
     Indication: CLUSTER HEADACHE
     Dates: start: 20070208, end: 20070228

REACTIONS (1)
  - DENTAL CARIES [None]
